FAERS Safety Report 13929602 (Version 1)
Quarter: 2017Q3

REPORT INFORMATION
  Report Type: Spontaneous
  Country: FR (occurrence: FR)
  Receive Date: 20170901
  Receipt Date: 20170901
  Transmission Date: 20171127
  Serious: Yes (Death, Hospitalization)
  Sender: FDA-Public Use
  Company Number: FR-ACCORD-057786

PATIENT
  Age: 44 Year
  Sex: Female

DRUGS (2)
  1. OXALIPLATIN ACCORD [Suspect]
     Active Substance: OXALIPLATIN
     Indication: ADENOCARCINOMA OF COLON
     Route: 042
     Dates: start: 20170807
  2. FLUOROURACIL ACCORD [Suspect]
     Active Substance: FLUOROURACIL
     Indication: ADENOCARCINOMA OF COLON
     Route: 042
     Dates: start: 20170807

REACTIONS (6)
  - Respiratory distress [Recovered/Resolved]
  - Tachycardia [Recovered/Resolved]
  - Condition aggravated [Unknown]
  - Pleural effusion [Unknown]
  - Multiple organ dysfunction syndrome [Fatal]
  - Oxygen saturation decreased [Recovered/Resolved]

NARRATIVE: CASE EVENT DATE: 20170807
